FAERS Safety Report 11058051 (Version 1)
Quarter: 2015Q2

REPORT INFORMATION
  Report Type: Spontaneous
  Country: IN (occurrence: IN)
  Receive Date: 20150423
  Receipt Date: 20150423
  Transmission Date: 20150821
  Serious: Yes (Other)
  Sender: FDA-Public Use
  Company Number: IN-ACCORD-030263

PATIENT
  Age: 55 Year
  Sex: Female

DRUGS (3)
  1. CELECOXIB. [Suspect]
     Active Substance: CELECOXIB
     Indication: CHOLANGIOCARCINOMA
     Dosage: RECEIVED 21 DAYS EVERY 28 DAYS
     Route: 048
  2. ETOPOSIDE. [Suspect]
     Active Substance: ETOPOSIDE
     Indication: CHOLANGIOCARCINOMA
     Dosage: RECEIVED 21 DAYS EVERY 28 DAYS
     Route: 048
  3. CYCLOPHOSPHAMIDE/CYCLOPHOSPHAMIDE MONOHYDRATE [Suspect]
     Active Substance: CYCLOPHOSPHAMIDE
     Indication: CHOLANGIOCARCINOMA
     Dosage: RECEIVED 21 DAYS EVERY 28 DAYS

REACTIONS (2)
  - Stomatitis [Unknown]
  - Herpes zoster [Unknown]
